FAERS Safety Report 9397908 (Version 1)
Quarter: 2013Q3

REPORT INFORMATION
  Report Type: Spontaneous
  Country: US (occurrence: None)
  Receive Date: 20130709
  Receipt Date: 20130709
  Transmission Date: 20140515
  Serious: Yes (Death, Hospitalization, Other)
  Sender: FDA-Public Use
  Company Number: DAV-AE-PYR-13-03

PATIENT
  Age: 53 Year
  Sex: Female

DRUGS (4)
  1. PYRAZINAMIDE [Suspect]
     Indication: DRUG THERAPY
  2. RIFAMPIN [Concomitant]
  3. ISONIAZID [Concomitant]
  4. ETHAMBUTOL [Concomitant]

REACTIONS (6)
  - Hepatitis [None]
  - Septic shock [None]
  - Multi-organ failure [None]
  - Erythema [None]
  - Respiratory failure [None]
  - Renal failure acute [None]
